FAERS Safety Report 18415476 (Version 1)
Quarter: 2020Q4

REPORT INFORMATION
  Report Type: Spontaneous
  Country: US (occurrence: US)
  Receive Date: 20201022
  Receipt Date: 20201022
  Transmission Date: 20210114
  Serious: No
  Sender: FDA-Public Use
  Company Number: US-TEVA-2020-US-1841553

PATIENT
  Age: 64 Year
  Sex: Female

DRUGS (7)
  1. CENTRUM ADULTS ORAL TABLET [Concomitant]
     Indication: PRODUCT USED FOR UNKNOWN INDICATION
     Route: 048
  2. AUSTEDO [Suspect]
     Active Substance: DEUTETRABENAZINE
     Indication: TARDIVE DYSKINESIA
     Dosage: 30 MILLIGRAM DAILY; 6 MG TABLET+9 MG TABLET TWICE DAILY
     Dates: start: 20200728, end: 20201013
  3. TRINTELLIX ORAL TABLET 20 MG [Concomitant]
     Indication: PRODUCT USED FOR UNKNOWN INDICATION
     Route: 048
  4. AUSTEDO [Suspect]
     Active Substance: DEUTETRABENAZINE
     Dosage: 30 MILLIGRAM DAILY; 6 MG TABLET+9 MG TABLET TWICE DAILY
     Dates: start: 20200728, end: 20201013
  5. PRAVASTATIN SODIUM ORAL TABLET 20 MG [Concomitant]
     Indication: PRODUCT USED FOR UNKNOWN INDICATION
     Route: 048
  6. CETIRIZINE HCL ORAL TABLET 10 MG [Concomitant]
     Indication: PRODUCT USED FOR UNKNOWN INDICATION
     Route: 048
  7. NAPROXEN ORAL TABLET 500 MG [Concomitant]
     Indication: PRODUCT USED FOR UNKNOWN INDICATION
     Route: 048

REACTIONS (2)
  - Urticaria [Recovered/Resolved]
  - Erythema [Recovered/Resolved]
